FAERS Safety Report 21766742 (Version 3)
Quarter: 2023Q1

REPORT INFORMATION
  Report Type: Spontaneous
  Country: GB (occurrence: GB)
  Receive Date: 20221222
  Receipt Date: 20230308
  Transmission Date: 20230418
  Serious: Yes (Death, Hospitalization, Other)
  Sender: FDA-Public Use
  Company Number: None

PATIENT
  Age: 22 Year
  Sex: Male
  Weight: 56.2 kg

DRUGS (9)
  1. KETAMINE HYDROCHLORIDE [Suspect]
     Active Substance: KETAMINE HYDROCHLORIDE
     Indication: Substance use
     Dosage: DAILY (SNIFFING)
     Route: 055
     Dates: start: 202002
  2. CHLORHEXIDINE HYDROCHLORIDE\NEOMYCIN SULFATE [Concomitant]
     Active Substance: CHLORHEXIDINE HYDROCHLORIDE\NEOMYCIN SULFATE
     Dosage: UNK (NASAL CREAM)
  3. MOVICOL [Concomitant]
     Active Substance: POLYETHYLENE GLYCOL 3350\POTASSIUM CHLORIDE\SODIUM BICARBONATE\SODIUM CHLORIDE
     Dosage: UNK
  4. COCODAMOL [Concomitant]
     Active Substance: ACETAMINOPHEN\CODEINE PHOSPHATE
     Dosage: 30/500
  5. OMEPRAZOLE [Concomitant]
     Active Substance: OMEPRAZOLE
     Dosage: UNK
  6. AMOXICILLIN [Concomitant]
     Active Substance: AMOXICILLIN
     Dosage: UNK
  7. SOLIFENACIN [Concomitant]
     Active Substance: SOLIFENACIN
     Dosage: UNK
  8. VENLAFAXINE [Concomitant]
     Active Substance: VENLAFAXINE HYDROCHLORIDE
     Dosage: UNK
  9. RAMIPRIL [Concomitant]
     Active Substance: RAMIPRIL
     Dosage: UNK

REACTIONS (49)
  - Cardio-respiratory arrest [Fatal]
  - Acute kidney injury [Fatal]
  - Hyperkalaemia [Fatal]
  - COVID-19 [Fatal]
  - Acute myocardial infarction [Fatal]
  - Toxicity to various agents [Fatal]
  - Drug withdrawal syndrome [Not Recovered/Not Resolved]
  - Vomiting [Unknown]
  - Bladder injury [Not Recovered/Not Resolved]
  - End stage renal disease [Not Recovered/Not Resolved]
  - Refusal of treatment by patient [Not Recovered/Not Resolved]
  - Drug abuse [Not Recovered/Not Resolved]
  - Hepatitis [Not Recovered/Not Resolved]
  - Renal tubular necrosis [Not Recovered/Not Resolved]
  - Renal papillary necrosis [Not Recovered/Not Resolved]
  - Hydronephrosis [Not Recovered/Not Resolved]
  - Proteinuria [Unknown]
  - Cystitis [Unknown]
  - Pain in extremity [Unknown]
  - Abnormal loss of weight [Not Recovered/Not Resolved]
  - Abdominal pain [Unknown]
  - Hepatic function abnormal [Not Recovered/Not Resolved]
  - Blood test abnormal [Not Recovered/Not Resolved]
  - Alanine aminotransferase increased [Not Recovered/Not Resolved]
  - Agitation [Unknown]
  - Dyspnoea [Unknown]
  - Chest pain [Unknown]
  - Haematuria [Unknown]
  - Urge incontinence [Unknown]
  - Pollakiuria [Unknown]
  - Pain [Unknown]
  - Nocturia [Unknown]
  - Hyponatraemia [Not Recovered/Not Resolved]
  - Hypovolaemia [Unknown]
  - Urinary tract infection [Unknown]
  - Constipation [Unknown]
  - Fatigue [Unknown]
  - Heart rate increased [Unknown]
  - Anal incontinence [Unknown]
  - Lethargy [Unknown]
  - Blood alkaline phosphatase increased [Not Recovered/Not Resolved]
  - Arrhythmia [Unknown]
  - Cholelithiasis [Unknown]
  - Urinary tract obstruction [Unknown]
  - Oesophageal perforation [Unknown]
  - Pneumomediastinum [Unknown]
  - Biliary obstruction [Not Recovered/Not Resolved]
  - Dehydration [Unknown]
  - Circulatory collapse [Unknown]

NARRATIVE: CASE EVENT DATE: 20200201
